FAERS Safety Report 5537500-7 (Version None)
Quarter: 2007Q4

REPORT INFORMATION
  Report Type: 
  Country: None (occurrence: None)
  Receive Date: 20071207
  Receipt Date: 20071126
  Transmission Date: 20080405
  Serious: Yes (Hospitalization, Disabling)
  Sender: FDA-Public Use
  Company Number: JP-ELI_LILLY_AND_COMPANY-JP200710006543

PATIENT
  Sex: Female
  Weight: 48 kg

DRUGS (24)
  1. HUMULIN R [Suspect]
     Dosage: UNK, 3/D
     Route: 058
     Dates: start: 20070817, end: 20070902
  2. HUMALOG [Suspect]
     Dosage: 20 IU, EACH MORNING
     Route: 058
     Dates: start: 20070903, end: 20070906
  3. HUMALOG [Suspect]
     Dosage: 10 IU, DAILY (1/D)
     Dates: start: 20070903, end: 20070906
  4. HUMALOG [Suspect]
     Route: 058
     Dates: start: 20070907, end: 20071017
  5. HUMALOG [Suspect]
     Dosage: 60 IU, EACH MORNING
     Route: 058
     Dates: start: 20071018, end: 20071019
  6. HUMALOG [Suspect]
     Dosage: 60 IU, DAILY (1/D)
     Route: 058
     Dates: start: 20071018, end: 20071019
  7. HUMALOG [Suspect]
     Dosage: 40 IU, EACH EVENING
     Route: 058
     Dates: start: 20071018, end: 20071019
  8. ENALAPRIL MALEATE [Concomitant]
     Indication: HYPERTENSION
     Dosage: 10 MG, DAILY (1/D)
     Route: 048
     Dates: start: 20070713, end: 20070919
  9. ARTIST [Concomitant]
     Indication: HYPERTENSION
     Dosage: 10 MG, DAILY (1/D)
     Route: 048
     Dates: start: 20060913
  10. MICARDIS [Concomitant]
     Indication: HYPERTENSION
     Dosage: 40 MG, DAILY (1/D)
     Route: 048
     Dates: start: 20060913
  11. FAMOTIDINE [Concomitant]
     Indication: GASTRITIS
     Dosage: 20 MG, DAILY (1/D)
     Route: 048
     Dates: start: 20061012
  12. ASPIRIN [Concomitant]
     Indication: ARTERIOSCLEROSIS
     Dosage: 100 MG, DAILY (1/D)
     Route: 048
     Dates: start: 20060913, end: 20071119
  13. ARGAMATE [Concomitant]
     Indication: HYPERKALAEMIA
     Dosage: 2 D/F, DAILY (1/D)
     Route: 048
     Dates: start: 20070510
  14. NORVASC /00972401/ [Concomitant]
     Indication: HYPERTENSION
     Dosage: 10 MG, DAILY (1/D)
     Route: 048
     Dates: start: 20060913
  15. KINEDAK [Concomitant]
     Indication: DIABETIC NEUROPATHY
     Dosage: 1500 MG, DAILY (1/D)
     Route: 048
     Dates: start: 20070830, end: 20071005
  16. CYANOCOBALAMIN [Concomitant]
     Indication: DIABETIC NEUROPATHY
     Dosage: 1500 MG, DAILY (1/D)
     Route: 048
     Dates: start: 20070830, end: 20071005
  17. JUSO [Concomitant]
     Indication: METABOLIC ACIDOSIS
     Dosage: 3 G, DAILY (1/D)
     Route: 048
     Dates: start: 20070820
  18. MAGNESIUM OXIDE [Concomitant]
     Indication: CONSTIPATION
     Dosage: 1 G, DAILY (1/D)
     Route: 048
     Dates: start: 20060913
  19. ESPO [Concomitant]
     Indication: NEPHROGENIC ANAEMIA
     Dosage: 1 D/F, WEEKLY (1/W)
     Route: 058
     Dates: start: 20070817
  20. LIPITOR [Concomitant]
     Indication: HYPERLIPIDAEMIA
     Dosage: 10 MG, DAILY (1/D)
     Route: 048
     Dates: start: 20071024
  21. LASIX [Concomitant]
     Indication: OEDEMA PERIPHERAL
     Dosage: 40 MG, DAILY (1/D)
     Route: 048
     Dates: start: 20070412
  22. KREMEZIN [Concomitant]
     Indication: RENAL FAILURE CHRONIC
     Dosage: 3 D/F, DAILY (1/D)
     Route: 048
     Dates: start: 20070907
  23. RHUBARB DRY EXTRACT [Concomitant]
     Indication: CONSTIPATION
     Dosage: 1.5 G, DAILY (1/D)
     Route: 048
     Dates: start: 20070907
  24. RISEDRONATE SODIUM [Concomitant]
     Indication: OSTEOPOROSIS
     Dosage: 2.5 MG, DAILY (1/D)
     Route: 048
     Dates: start: 20071025

REACTIONS (4)
  - ANTI-INSULIN ANTIBODY INCREASED [None]
  - EOSINOPHILIA [None]
  - HYPERGLYCAEMIA [None]
  - RENAL IMPAIRMENT [None]
